FAERS Safety Report 9711299 (Version 1)
Quarter: 2013Q4

REPORT INFORMATION
  Report Type: Spontaneous
  Country: US (occurrence: US)
  Receive Date: 20131126
  Receipt Date: 20131126
  Transmission Date: 20140711
  Serious: No
  Sender: FDA-Public Use
  Company Number: US-BRISTOL-MYERS SQUIBB COMPANY-19060334

PATIENT
  Age: 43 Year
  Sex: Female
  Weight: 50.34 kg

DRUGS (2)
  1. BYDUREON 2MG SUSPENSION [Suspect]
     Indication: TYPE 2 DIABETES MELLITUS
     Route: 058
     Dates: start: 20130503
  2. GLUMETZA [Concomitant]

REACTIONS (8)
  - Diarrhoea [Unknown]
  - Blood glucose decreased [Unknown]
  - Nausea [Unknown]
  - Weight decreased [Unknown]
  - Gastrointestinal infection [Unknown]
  - Abdominal pain upper [Unknown]
  - Constipation [Unknown]
  - Flatulence [Unknown]
